FAERS Safety Report 16425984 (Version 1)
Quarter: 2019Q2

REPORT INFORMATION
  Report Type: Spontaneous
  Country: IE (occurrence: IE)
  Receive Date: 20190613
  Receipt Date: 20190613
  Transmission Date: 20190711
  Serious: Yes (Other)
  Sender: FDA-Public Use
  Company Number: IE-BAYER-2019-109506

PATIENT
  Age: 50 Year
  Sex: Male

DRUGS (1)
  1. SORAFENIB (RAF KINASE INHIBITOR) [Suspect]
     Active Substance: SORAFENIB
     Indication: HEPATOCELLULAR CARCINOMA
     Dosage: UNK

REACTIONS (7)
  - Pulmonary embolism [None]
  - Pleuritic pain [None]
  - Acute myocardial infarction [None]
  - Metastases to heart [None]
  - Hepatocellular carcinoma [None]
  - Abdominal pain upper [None]
  - Thrombosis [None]

NARRATIVE: CASE EVENT DATE: 2015
